FAERS Safety Report 23985829 (Version 1)
Quarter: 2024Q2

REPORT INFORMATION
  Report Type: Spontaneous
  Country: ES (occurrence: ES)
  Receive Date: 20240618
  Receipt Date: 20240618
  Transmission Date: 20240715
  Serious: Yes (Hospitalization)
  Sender: FDA-Public Use
  Company Number: ES-ROCHE-3416632

PATIENT
  Age: 50 Year
  Sex: Male
  Weight: 94 kg

DRUGS (42)
  1. PEMETREXED [Suspect]
     Active Substance: PEMETREXED
     Indication: Non-small cell lung cancer metastatic
     Dosage: 975 MG
     Route: 042
  2. PEMETREXED [Suspect]
     Active Substance: PEMETREXED
     Dosage: 1015 MG, EVERY 3 WEEKS
     Route: 042
     Dates: start: 20230510
  3. CARBOPLATIN [Suspect]
     Active Substance: CARBOPLATIN
     Indication: Non-small cell lung cancer metastatic
     Dosage: 750 MG, EVERY 3 WEEKS
     Route: 042
     Dates: start: 20230510
  4. FENTANYL [Concomitant]
     Active Substance: FENTANYL\FENTANYL CITRATE
     Indication: Respiratory failure
     Dates: start: 20230905, end: 20230905
  5. DIPYRONE [Concomitant]
     Active Substance: DIPYRONE
     Indication: Respiratory failure
     Dates: start: 20230903, end: 20230904
  6. TERRACORTRIL [HYDROCORTISONE ACETATE;OXYTETRACYCLINE HYDROCHLORIDE;POL [Concomitant]
     Indication: Conjunctivitis
     Dates: start: 20230804, end: 20230811
  7. ENOXAPARIN [Concomitant]
     Active Substance: ENOXAPARIN
     Indication: Respiratory failure
     Dates: start: 20230904, end: 20230904
  8. TIRAGOLUMAB [Concomitant]
     Active Substance: TIRAGOLUMAB
     Indication: Non-small cell lung cancer metastatic
     Dosage: ON 28/AUG/2023, MOST RECENT DOSE OF BLINDED TIRAGOLUMAB PRIOR TO AE/SAE.
     Dates: start: 20230510
  9. PREGABALIN [Concomitant]
     Active Substance: PREGABALIN
     Indication: Respiratory failure
     Dates: start: 20230904, end: 20230905
  10. PEITEL [Concomitant]
     Indication: Rash
     Dates: start: 20230517
  11. ATROALDO [Concomitant]
     Indication: Asthma
     Dosage: FREQ:.25 D;
  12. MONTELUKAST [Concomitant]
     Active Substance: MONTELUKAST SODIUM
     Indication: Chronic obstructive pulmonary disease
  13. FENTANYL TRANSDERMAL SYSTEM [Concomitant]
     Active Substance: FENTANYL
     Indication: Back pain
     Dosage: 25 UG, 2X/WEEK
     Dates: start: 20230509
  14. METAMIZOLE [Concomitant]
     Active Substance: METAMIZOLE
     Indication: Back pain
     Dosage: FREQ:.3X DAY
     Dates: start: 20230509
  15. FOLIC ACID [Concomitant]
     Active Substance: FOLIC ACID
  16. VENTOLIN [Concomitant]
     Active Substance: ALBUTEROL SULFATE
     Indication: Asthma
  17. NICOTINE [Concomitant]
     Active Substance: NICOTINE
     Indication: Ex-tobacco user
     Dates: start: 20230905
  18. ATEZOLIZUMAB [Concomitant]
     Active Substance: ATEZOLIZUMAB
     Indication: Non-small cell lung cancer metastatic
     Dosage: ON 28/AUG/2023, MOST RECENT DOSE OF BLINDED ATEZOLIZUMAB PRIOR TO SAE.
     Dates: start: 20230510
  19. HYDROCORTISONE [Concomitant]
     Active Substance: HYDROCORTISONE\HYDROCORTISONE ACETATE
     Indication: Respiratory failure
     Dates: start: 20230903, end: 20230903
  20. PREDNISONE [Concomitant]
     Active Substance: PREDNISONE
     Indication: Respiratory failure
     Dates: start: 20230908, end: 20230910
  21. PREDNISONE [Concomitant]
     Active Substance: PREDNISONE
     Dates: start: 20230906, end: 20230907
  22. PREDNISONE [Concomitant]
     Active Substance: PREDNISONE
     Dates: start: 20230911, end: 20230913
  23. PREDNISONE [Concomitant]
     Active Substance: PREDNISONE
     Dates: start: 20230904, end: 20230905
  24. DICLOFENAC [Concomitant]
     Active Substance: DICLOFENAC
     Indication: Gastrointestinal disorder prophylaxis
     Dosage: MEDICATION DOSE 1 OTHER
     Dates: start: 20230804, end: 20230824
  25. DICLOFENAC [Concomitant]
     Active Substance: DICLOFENAC
     Indication: Conjunctivitis
     Dosage: MEDICATION FREQUENCY UNKNOWN
     Dates: start: 20230714
  26. OMEPRAZOLE [Concomitant]
     Active Substance: DONEPEZIL HYDROCHLORIDE\OMEPRAZOLE\OMEPRAZOLE MAGNESIUM
  27. BECLOMETHASONE\FORMOTEROL [Concomitant]
     Active Substance: BECLOMETHASONE\FORMOTEROL
     Indication: Respiratory failure
     Dosage: 2 PUFF
     Dates: start: 20230904, end: 20230905
  28. CYANOCOBALAMIN [Concomitant]
     Active Substance: CYANOCOBALAMIN
     Dates: start: 20230421
  29. KAPTIC [Concomitant]
     Indication: Back pain
     Dates: start: 20230509
  30. DEXAMETHASONE [Concomitant]
     Active Substance: DEXAMETHASONE
     Dosage: 4 MG, 2X/DAY
     Dates: start: 20230827, end: 20230827
  31. DEXAMETHASONE [Concomitant]
     Active Substance: DEXAMETHASONE
     Dosage: 20 MG, 1X/DAY
     Dates: start: 20230828, end: 20230828
  32. DEXAMETHASONE [Concomitant]
     Active Substance: DEXAMETHASONE
     Dosage: 4 MG, 1X/DAY
     Dates: start: 20230829, end: 20230829
  33. ZOLPIDEM [Concomitant]
     Active Substance: ZOLPIDEM TARTRATE
     Indication: Insomnia
     Dates: start: 20230714
  34. AMOXICILLIN\CLAVULANIC ACID [Concomitant]
     Active Substance: AMOXICILLIN\CLAVULANIC ACID
     Indication: Respiratory failure
     Dosage: 3X DAY
     Dates: start: 20230903, end: 20230905
  35. AMOXICILLIN\CLAVULANIC ACID [Concomitant]
     Active Substance: AMOXICILLIN\CLAVULANIC ACID
     Indication: Cellulitis
     Dosage: 1 TABLET
     Dates: start: 20230804, end: 20230814
  36. AMOXICILLIN\CLAVULANIC ACID [Concomitant]
     Active Substance: AMOXICILLIN\CLAVULANIC ACID
     Dosage: 3X DAY
     Dates: start: 20230903, end: 20230905
  37. METHYLPREDNISOLONE [Concomitant]
     Active Substance: METHYLPREDNISOLONE
     Indication: Respiratory failure
     Dates: start: 20230903, end: 20230904
  38. ACETAMINOPHEN [Concomitant]
     Active Substance: ACETAMINOPHEN
     Indication: Respiratory failure
     Dates: start: 20230903, end: 20230904
  39. BECLOMETHASONE DIPROPIONATE\FORMOTEROL FUMARATE\GLYCOPYRROLATE [Concomitant]
     Active Substance: BECLOMETHASONE DIPROPIONATE\FORMOTEROL FUMARATE\GLYCOPYRROLATE
     Indication: Chronic obstructive pulmonary disease
     Dosage: 1 PUFF
  40. ALBUTEROL\IPRATROPIUM BROMIDE [Concomitant]
     Active Substance: ALBUTEROL\IPRATROPIUM BROMIDE
     Indication: Respiratory failure
     Dosage: FREQ:.25 D;SALBUTAMOL 5 MG+ IPATROPIUM (500UG)
     Dates: start: 20230903, end: 20230905
  41. PEMBROLIZUMAB [Concomitant]
     Active Substance: PEMBROLIZUMAB
     Indication: Non-small cell lung cancer metastatic
     Dosage: ON 28/AUG/2023, MOST RECENT DOSE OF BLINDED PEMBROLIZUMAB PRIOR TO SAE, 3X WEEK.
     Dates: start: 20230510
  42. LYRICA [Concomitant]
     Active Substance: PREGABALIN
     Indication: Back pain
     Dosage: 2X DAY

REACTIONS (1)
  - Chronic obstructive pulmonary disease [Recovered/Resolved]

NARRATIVE: CASE EVENT DATE: 20230903
